FAERS Safety Report 4280901-8 (Version None)
Quarter: 2004Q1

REPORT INFORMATION
  Report Type: 
  Country: None (occurrence: None)
  Receive Date: 20040129
  Receipt Date: 20031118
  Transmission Date: 20041129
  Serious: Yes (Death)
  Sender: FDA-Public Use
  Company Number: JP-GLAXOSMITHKLINE-B0315882A

PATIENT
  Age: 97 Year
  Sex: Female
  Weight: 40 kg

DRUGS (2)
  1. ZOVIRAX [Suspect]
     Indication: HERPES ZOSTER
     Dosage: 500MG PER DAY
     Route: 042
     Dates: start: 20031111, end: 20031114
  2. DICLOFENAC SODIUM [Concomitant]
     Route: 048

REACTIONS (5)
  - CARDIAC FAILURE CHRONIC [None]
  - DELIRIUM [None]
  - DEPRESSED LEVEL OF CONSCIOUSNESS [None]
  - DISEASE PROGRESSION [None]
  - SOMNOLENCE [None]
